FAERS Safety Report 4613319-6 (Version None)
Quarter: 2005Q1

REPORT INFORMATION
  Report Type: 
  Country: None (occurrence: None)
  Receive Date: 20050315
  Receipt Date: 20050301
  Transmission Date: 20050727
  Serious: Yes (Hospitalization)
  Sender: FDA-Public Use
  Company Number: US_0412108762

PATIENT
  Age: 84 Year
  Sex: Male

DRUGS (3)
  1. CEFACLOR [Suspect]
     Indication: GASTROENTERITIS
     Dosage: 500 MG DAY
     Dates: start: 20041119, end: 20041119
  2. MUCOSTA (REBAMIPIDE) [Concomitant]
  3. GASMOTIN (MOSAPRIDE CITRATE) [Concomitant]

REACTIONS (3)
  - ABASIA [None]
  - ACUTE MYOCARDIAL INFARCTION [None]
  - RHABDOMYOLYSIS [None]
